FAERS Safety Report 4984078-2 (Version None)
Quarter: 2006Q1

REPORT INFORMATION
  Report Type: 
  Country: None (occurrence: None)
  Receive Date: 20060306
  Receipt Date: 20060104
  Transmission Date: 20060701
  Serious: No
  Sender: FDA-Public Use
  Company Number: 33572

PATIENT
  Age: 36 Year
  Sex: Female

DRUGS (2)
  1. NEVANAC [Suspect]
     Indication: PROPHYLAXIS
     Dosage: 2 GTT ONCE OPHT
     Route: 047
     Dates: start: 20051115
  2. TOBREX [Concomitant]

REACTIONS (2)
  - CORNEAL INFILTRATES [None]
  - VISION BLURRED [None]
